FAERS Safety Report 8925507 (Version 1)
Quarter: 2012Q4

REPORT INFORMATION
  Report Type: Spontaneous
  Country: US (occurrence: None)
  Receive Date: 20121126
  Receipt Date: 20121126
  Transmission Date: 20130627
  Serious: Yes (Disabling)
  Sender: FDA-Public Use
  Company Number: None

PATIENT
  Age: 57 Year
  Sex: Male
  Weight: 65.77 kg

DRUGS (5)
  1. SYMBICORT [Suspect]
     Indication: COPD
     Dosage: twice a day
  2. QUETIAPINE [Concomitant]
  3. SERTRALINE [Concomitant]
  4. GABAPENTIN [Concomitant]
  5. THYROID MED [Concomitant]

REACTIONS (2)
  - Vision blurred [None]
  - Cataract [None]
